FAERS Safety Report 15669692 (Version 1)
Quarter: 2018Q4

REPORT INFORMATION
  Report Type: Other
  Country: FR (occurrence: FR)
  Receive Date: 20181129
  Receipt Date: 20181129
  Transmission Date: 20190205
  Serious: Yes (Other)
  Sender: FDA-Public Use
  Company Number: FR-DENTSPLY-2018SCDP000514

PATIENT
  Age: 2 Month
  Sex: Male

DRUGS (1)
  1. PRILOCAINE AND LIDOCAINE [Suspect]
     Active Substance: LIDOCAINE\PRILOCAINE
     Indication: PAIN
     Dosage: 1 DF, UNK
     Route: 062
     Dates: start: 20181008

REACTIONS (1)
  - Thermal burn [None]

NARRATIVE: CASE EVENT DATE: 201810
